FAERS Safety Report 24792629 (Version 1)
Quarter: 2024Q4

REPORT INFORMATION
  Report Type: Spontaneous
  Country: GB (occurrence: GB)
  Receive Date: 20241231
  Receipt Date: 20241231
  Transmission Date: 20250115
  Serious: Yes (Hospitalization, Other)
  Sender: ADVANZ PHARMA
  Company Number: GB-MLMSERVICE-20241219-PI300814-00095-2

PATIENT

DRUGS (5)
  1. PREDNISOLONE [Suspect]
     Active Substance: PREDNISOLONE
     Indication: Rheumatoid arthritis
     Dosage: SLOW, TAPERING COURSE OF ORAL STEROIDS ( PREDNISOLONE) OVER 20 MONTHS WITH INFREQUENT COURSES WITH I
     Route: 048
  2. PREDNISOLONE [Suspect]
     Active Substance: PREDNISOLONE
     Dosage: SLOW, TAPERING COURSE OF ORAL STEROIDS ( PREDNISOLONE) OVER 20 MONTHS WITH INFREQUENT COURSES WITH I
     Route: 014
  3. PREDNISOLONE [Suspect]
     Active Substance: PREDNISOLONE
     Dosage: SLOW, TAPERING COURSE OF ORAL STEROIDS ( PREDNISOLONE) OVER 20 MONTHS WITH INFREQUENT COURSES WITH I
     Route: 030
  4. HYDROXYCHLOROQUINE [Suspect]
     Active Substance: HYDROXYCHLOROQUINE
     Indication: Rheumatoid arthritis
     Dosage: UNK
     Dates: start: 2014
  5. CERTOLIZUMAB [Concomitant]
     Active Substance: CERTOLIZUMAB
     Indication: Rheumatoid arthritis
     Dosage: UNK
     Dates: start: 2019

REACTIONS (2)
  - Infectious pleural effusion [Recovered/Resolved]
  - Catheter site infection [Recovered/Resolved]
